FAERS Safety Report 4493847-7 (Version None)
Quarter: 2004Q4

REPORT INFORMATION
  Report Type: 
  Country: None (occurrence: None)
  Receive Date: 20041103
  Receipt Date: 20041103
  Transmission Date: 20050328
  Serious: Yes (Hospitalization)
  Sender: FDA-Public Use
  Company Number: None

PATIENT
  Sex: Male
  Weight: 12.2 kg

DRUGS (8)
  1. VINCRISTINE [Suspect]
     Indication: ACUTE LYMPHOCYTIC LEUKAEMIA
     Dosage: 1 MG IV DAYS 0,7,14,21
     Route: 042
     Dates: start: 20041001
  2. VINCRISTINE [Suspect]
     Indication: ACUTE LYMPHOCYTIC LEUKAEMIA
     Dosage: 1 MG IV DAYS 0,7,14,21
     Route: 042
     Dates: start: 20041008
  3. VINCRISTINE [Suspect]
     Indication: ACUTE LYMPHOCYTIC LEUKAEMIA
     Dosage: 1 MG IV DAYS 0,7,14,21
     Route: 042
     Dates: start: 20041014
  4. VINCRISTINE [Suspect]
     Indication: ACUTE LYMPHOCYTIC LEUKAEMIA
     Dosage: 1 MG IV DAYS 0,7,14,21
     Route: 042
     Dates: start: 20041021
  5. DEXAMETHASONE [Suspect]
     Indication: ACUTE LYMPHOCYTIC LEUKAEMIA
     Dosage: 1.3 MG PO TID DAYS 0-27
     Route: 048
     Dates: start: 20041001, end: 20041026
  6. IT ARAC [Concomitant]
  7. PEGANPARGASE [Concomitant]
  8. METHOTREXATE [Concomitant]

REACTIONS (5)
  - FISTULA [None]
  - GASTROINTESTINAL NECROSIS [None]
  - GASTROINTESTINAL TOXICITY [None]
  - INFLAMMATION [None]
  - LARGE INTESTINE PERFORATION [None]
